FAERS Safety Report 9305409 (Version 1)
Quarter: 2013Q2

REPORT INFORMATION
  Report Type: Spontaneous
  Country: IT (occurrence: IT)
  Receive Date: 20130523
  Receipt Date: 20130523
  Transmission Date: 20140414
  Serious: Yes (Death, Other)
  Sender: FDA-Public Use
  Company Number: PHHY2013IT050799

PATIENT
  Age: 9 Year
  Sex: Female

DRUGS (3)
  1. CICLOSPORIN [Suspect]
     Indication: PROPHYLAXIS AGAINST GRAFT VERSUS HOST DISEASE
  2. METHOTREXATE [Suspect]
     Indication: PROPHYLAXIS AGAINST GRAFT VERSUS HOST DISEASE
  3. PREDNISOLONE [Suspect]
     Indication: GRAFT VERSUS HOST DISEASE IN SKIN

REACTIONS (11)
  - Multi-organ failure [Fatal]
  - General physical health deterioration [Unknown]
  - American trypanosomiasis [Unknown]
  - Anaemia [Unknown]
  - Neutropenia [Unknown]
  - Thrombocytopenia [Unknown]
  - Epstein-Barr virus infection [Recovered/Resolved]
  - Pyrexia [Unknown]
  - Hepatomegaly [Unknown]
  - Hepatic function abnormal [Unknown]
  - Graft versus host disease in skin [Unknown]
